FAERS Safety Report 11355213 (Version 1)
Quarter: 2015Q3

REPORT INFORMATION
  Report Type: Report from Study
  Country: CN (occurrence: CN)
  Receive Date: 20150807
  Receipt Date: 20150807
  Transmission Date: 20151125
  Serious: Yes (Other)
  Sender: FDA-Public Use
  Company Number: CN-BAXALTA-2015BAX029614

PATIENT
  Age: 7 Year
  Weight: 20 kg

DRUGS (3)
  1. OCTOCOG ALFA; BAXJECT II [Suspect]
     Active Substance: ANTIHEMOPHILIC FACTOR, HUMAN RECOMBINANT
     Indication: HAEMOPHILIA
     Dosage: 250 IU, 7 X/WEEK
     Route: 065
     Dates: start: 20131001
  2. OCTOCOG ALFA; BAXJECT II [Suspect]
     Active Substance: ANTIHEMOPHILIC FACTOR, HUMAN RECOMBINANT
     Indication: PROPHYLAXIS
     Dosage: 500 IU 3X A WEEK
     Route: 065
     Dates: start: 2015
  3. KOGENATE FS [Concomitant]
     Active Substance: ANTIHEMOPHILIC FACTOR, HUMAN RECOMBINANT
     Indication: HAEMOPHILIA

REACTIONS (3)
  - Joint injury [Unknown]
  - Haemarthrosis [Unknown]
  - Haemorrhage [Unknown]

NARRATIVE: CASE EVENT DATE: 2014
